FAERS Safety Report 7389409-4 (Version None)
Quarter: 2011Q2

REPORT INFORMATION
  Report Type: 
  Country: None (occurrence: None)
  Receive Date: 20110401
  Receipt Date: 20110328
  Transmission Date: 20111010
  Serious: Yes (Hospitalization)
  Sender: FDA-Public Use
  Company Number: PHHY2011FR17433

PATIENT
  Sex: Female
  Weight: 69 kg

DRUGS (8)
  1. DAPTOMYCIN [Suspect]
     Indication: STAPHYLOCOCCAL MEDIASTINITIS
     Dosage: 6 MG/KG/48H
     Dates: start: 20100730
  2. ZYLORIC [Concomitant]
     Indication: GOUT
     Dates: start: 20100806, end: 20100808
  3. ACTRAPID HUMAN [Concomitant]
     Dates: start: 20100806
  4. RIFAMPICIN [Suspect]
     Indication: BACILLUS INFECTION
     Dosage: 600 MG/DAY
     Dates: start: 20100730, end: 20100802
  5. DAPTOMYCIN [Suspect]
     Indication: STAPHYLOCOCCAL INFECTION
     Dosage: 6 MG/KG/24H
     Route: 042
     Dates: end: 20100806
  6. HEPARIN SODIUM [Suspect]
  7. CORDARONE [Concomitant]
     Indication: CARDIAC FAILURE
     Dosage: UNK
     Dates: start: 20100806, end: 20100811
  8. NEXIUM [Concomitant]
     Indication: GASTROOESOPHAGEAL REFLUX DISEASE
     Dates: start: 20100804, end: 20100810

REACTIONS (6)
  - RENAL FAILURE [None]
  - CHOLESTASIS [None]
  - BLOOD CREATININE INCREASED [None]
  - THROMBOCYTOPENIA [None]
  - DIALYSIS [None]
  - CONDITION AGGRAVATED [None]
